FAERS Safety Report 21940705 (Version 1)
Quarter: 2023Q1

REPORT INFORMATION
  Report Type: Report from Study
  Country: US (occurrence: US)
  Receive Date: 20230201
  Receipt Date: 20230201
  Transmission Date: 20230418
  Serious: No
  Sender: FDA-Public Use
  Company Number: US-EXELIXIS-CABO-22052007

PATIENT
  Age: 74 Year
  Sex: Male
  Weight: 68.934 kg

DRUGS (7)
  1. CABOMETYX [Suspect]
     Active Substance: CABOZANTINIB S-MALATE
     Indication: Renal cancer
     Dosage: 40 MG, QD
     Route: 048
     Dates: start: 20220408, end: 20220416
  2. CABOMETYX [Suspect]
     Active Substance: CABOZANTINIB S-MALATE
     Dosage: 40 MG, QD
     Route: 048
     Dates: start: 20220421
  3. OPDIVO [Suspect]
     Active Substance: NIVOLUMAB
     Indication: Renal cancer
     Dosage: MONTHLY
  4. ZOMETA [Concomitant]
     Active Substance: ZOLEDRONIC ACID
  5. LOPRESSOR [Concomitant]
     Active Substance: METOPROLOL TARTRATE
  6. PRAVASTATIN SODIUM [Concomitant]
     Active Substance: PRAVASTATIN SODIUM
  7. XARELTO [Concomitant]
     Active Substance: RIVAROXABAN

REACTIONS (5)
  - Tooth disorder [Unknown]
  - Seasonal allergy [Unknown]
  - Pain [Not Recovered/Not Resolved]
  - Pruritus [Not Recovered/Not Resolved]
  - Fatigue [Not Recovered/Not Resolved]

NARRATIVE: CASE EVENT DATE: 20220401
